FAERS Safety Report 12637794 (Version 1)
Quarter: 2016Q3

REPORT INFORMATION
  Report Type: Spontaneous
  Country: CH (occurrence: CH)
  Receive Date: 20160809
  Receipt Date: 20160809
  Transmission Date: 20161109
  Serious: Yes (Hospitalization, Other)
  Sender: FDA-Public Use
  Company Number: CH-PFIZER INC-2016378140

PATIENT
  Age: 82 Year
  Sex: Male

DRUGS (13)
  1. TENORMIN [Suspect]
     Active Substance: ATENOLOL
     Indication: HYPERTENSION
     Dosage: 50 MG, 1X/DAY
     Route: 048
     Dates: start: 2012, end: 20150823
  2. PREDNISON [Concomitant]
     Active Substance: PREDNISONE
     Dosage: UNK
  3. FRAGMIN [Concomitant]
     Active Substance: DALTEPARIN SODIUM
     Dosage: UNK
     Dates: start: 20150825
  4. ATORVASTATIN [Concomitant]
     Active Substance: ATORVASTATIN
     Dosage: 40.0MG UNKNOWN
  5. ASPIRIN. [Concomitant]
     Active Substance: ASPIRIN
     Dosage: 100.0MG UNKNOWN
  6. KCL [Concomitant]
     Active Substance: POTASSIUM CHLORIDE
     Dosage: UNK
     Dates: start: 20150824, end: 20150826
  7. TENORMIN [Suspect]
     Active Substance: ATENOLOL
     Dosage: 50 MG; ONE AND HALF TABLET DAILY
     Route: 048
     Dates: start: 20150825, end: 20150903
  8. INHIBACE PLUS [Suspect]
     Active Substance: CILAZAPRIL ANHYDROUS\HYDROCHLOROTHIAZIDE
     Dosage: 5/12.5, EVERY DAY
     Route: 065
     Dates: start: 20150825
  9. METHOTREXATE (METHOTREXATE SODIUM) [Concomitant]
     Active Substance: METHOTREXATE SODIUM
     Dosage: 5 MG, WEEKLY
  10. INHIBACE PLUS [Suspect]
     Active Substance: CILAZAPRIL ANHYDROUS\HYDROCHLOROTHIAZIDE
     Dosage: 5/12.5, EVERY DAY
     Route: 065
     Dates: start: 2012, end: 20150823
  11. PANTOZOLE [Concomitant]
     Active Substance: PANTOPRAZOLE SODIUM
  12. PLAVIX [Concomitant]
     Active Substance: CLOPIDOGREL BISULFATE
     Dosage: 75.0MG UNKNOWN
  13. AUGMENTIN [Concomitant]
     Active Substance: AMOXICILLIN\CLAVULANATE POTASSIUM
     Dosage: UNK
     Dates: start: 20150824, end: 20150828

REACTIONS (6)
  - Renal failure [Unknown]
  - Syncope [Recovered/Resolved]
  - Pneumonia [Unknown]
  - Aneurysm [Unknown]
  - Hyperglycaemia [Unknown]
  - Atrioventricular block [Recovered/Resolved]

NARRATIVE: CASE EVENT DATE: 20150823
